FAERS Safety Report 4823957-3 (Version None)
Quarter: 2005Q4

REPORT INFORMATION
  Report Type: 
  Country: None (occurrence: None)
  Receive Date: 20051109
  Receipt Date: 20051031
  Transmission Date: 20060501
  Serious: Yes (Other)
  Sender: FDA-Public Use
  Company Number: US-JNJFOC-20051100694

PATIENT
  Age: 35 Year
  Sex: Female

DRUGS (4)
  1. RISPERDAL [Suspect]
     Indication: PARANOIA
     Route: 048
     Dates: start: 20050601, end: 20050922
  2. RISPERDAL [Suspect]
     Route: 048
     Dates: start: 20050601, end: 20050922
  3. LAMICTAL [Concomitant]
  4. DEPAKOTE [Concomitant]

REACTIONS (3)
  - BLOOD PROLACTIN INCREASED [None]
  - GALACTORRHOEA [None]
  - PITUITARY TUMOUR BENIGN [None]
